FAERS Safety Report 6922662-7 (Version None)
Quarter: 2010Q3

REPORT INFORMATION
  Report Type: 
  Country: None (occurrence: None)
  Receive Date: 20100813
  Receipt Date: 20100802
  Transmission Date: 20110219
  Serious: Yes (Other)
  Sender: FDA-Public Use
  Company Number: PHHY2010MX50746

PATIENT
  Age: 80 Year
  Sex: Male

DRUGS (1)
  1. DIOVAN HCT [Suspect]
     Indication: HYPERTENSION
     Dosage: ONE TABLET (80/12.5 MG) DAILY
     Route: 048
     Dates: start: 20090701

REACTIONS (2)
  - DYSPHAGIA [None]
  - ODYNOPHAGIA [None]
